FAERS Safety Report 9689284 (Version 2)
Quarter: 2013Q4

REPORT INFORMATION
  Report Type: Spontaneous
  Country: ES (occurrence: ES)
  Receive Date: 20131114
  Receipt Date: 20131203
  Transmission Date: 20140711
  Serious: Yes (Other)
  Sender: FDA-Public Use
  Company Number: ES-TEVA-443200ISR

PATIENT
  Age: 83 Year
  Sex: Female

DRUGS (3)
  1. CARBOPLATIN [Suspect]
     Dosage: 350 MILLIGRAM DAILY;
     Route: 041
     Dates: start: 20120228, end: 20120628
  2. CARBOPLATIN [Suspect]
     Dosage: 275 MILLIGRAM DAILY;
     Route: 041
     Dates: start: 20130326
  3. CARBOPLATIN [Suspect]
     Dosage: 300 MILLIGRAM DAILY;
     Route: 041

REACTIONS (6)
  - Anaphylactic reaction [Recovered/Resolved]
  - Palmar-plantar erythrodysaesthesia syndrome [Recovered/Resolved]
  - Rash [Recovered/Resolved]
  - Pruritus [Recovered/Resolved]
  - Flushing [Recovered/Resolved]
  - Neutropenia [Recovered/Resolved]
